FAERS Safety Report 11440157 (Version 1)
Quarter: 2015Q3

REPORT INFORMATION
  Report Type: Spontaneous
  Country: US (occurrence: None)
  Receive Date: 20150831
  Receipt Date: 20150831
  Transmission Date: 20151125
  Serious: No
  Sender: FDA-Public Use
  Company Number: None

PATIENT
  Age: 65 Year
  Sex: Female
  Weight: 49.9 kg

DRUGS (2)
  1. POTASSIUM [Concomitant]
     Active Substance: POTASSIUM
  2. CHLOR-TRIMETON [Suspect]
     Active Substance: CHLORPHENIRAMINE MALEATE
     Indication: HYPERSENSITIVITY
     Dosage: 1 PILL ONCE DAILY

REACTIONS (3)
  - Dry eye [None]
  - Cold sweat [None]
  - Dry mouth [None]

NARRATIVE: CASE EVENT DATE: 20150830
